FAERS Safety Report 14080282 (Version 2)
Quarter: 2017Q4

REPORT INFORMATION
  Report Type: Spontaneous
  Country: US (occurrence: US)
  Receive Date: 20171012
  Receipt Date: 20171019
  Transmission Date: 20180321
  Serious: Yes (Death)
  Sender: FDA-Public Use
  Company Number: US-PFIZER INC-2017437661

PATIENT
  Age: 21 Year
  Sex: Male

DRUGS (1)
  1. PROPOFOL. [Suspect]
     Active Substance: PROPOFOL
     Dosage: UNK

REACTIONS (2)
  - Drug abuse [Fatal]
  - Accidental death [Fatal]
